FAERS Safety Report 11674385 (Version 1)
Quarter: 2015Q4

REPORT INFORMATION
  Report Type: Spontaneous
  Country: US (occurrence: US)
  Receive Date: 20151028
  Receipt Date: 20151028
  Transmission Date: 20160304
  Serious: Yes (Death)
  Sender: FDA-Public Use
  Company Number: US-PFIZER INC-2015349699

PATIENT
  Age: 66 Year
  Sex: Male
  Weight: 71 kg

DRUGS (13)
  1. CIMETIDINE [Concomitant]
     Active Substance: CIMETIDINE
     Dosage: 400 MG, 2X/DAY
  2. WARFARIN SODIUM. [Concomitant]
     Active Substance: WARFARIN SODIUM
     Dosage: 5 MG, UNK (TAKE 1 ON MON,WED,FRI,SAT AND HALF ON TUE,THU,SAT)
     Route: 048
  3. ONDANSETRON HCL [Concomitant]
     Active Substance: ONDANSETRON HYDROCHLORIDE
     Indication: NAUSEA
     Dosage: 8 MG (ONE) EVERY 12 HOURS
  4. ZOLPIDEM TARTRATE. [Concomitant]
     Active Substance: ZOLPIDEM TARTRATE
     Indication: SLEEP DISORDER
     Dosage: 5 MG, 1X/DAY, (AT BED TIME)
  5. SODIUM CHLORIDE. [Concomitant]
     Active Substance: SODIUM CHLORIDE
     Dosage: 1 G, 3X/DAY
  6. SENNA-S /00936101/ [Concomitant]
     Indication: ABNORMAL FAECES
     Dosage: UNK
  7. OLANZAPINE. [Concomitant]
     Active Substance: OLANZAPINE
     Dosage: 10 MG, 1X/DAY, (AT BED TIME)
  8. ARMOUR THYROID [Concomitant]
     Active Substance: THYROID, PORCINE\THYROID, UNSPECIFIED
     Dosage: 180 MG, DAILY
  9. OXYCODONE HYDROCHLORIDE. [Concomitant]
     Active Substance: OXYCODONE HYDROCHLORIDE
     Dosage: 5 MG (ONE) EVERY 8 HOURS
  10. PANTOPRAZOLE SODIUM. [Concomitant]
     Active Substance: PANTOPRAZOLE SODIUM
     Dosage: 40 MG, DAILY
  11. SUTENT [Suspect]
     Active Substance: SUNITINIB MALATE
     Indication: RENAL CELL CARCINOMA
     Dosage: 25 MG, CYCLIC (TWO 12.5 MG ONCE DAILY FOR TWO WEEKS AND THEN HE WAS OFF FOR ONE WEEK)
     Dates: start: 20140903, end: 20150616
  12. FERROUS SULFATE [Concomitant]
     Active Substance: FERROUS SULFATE\FERROUS SULFATE, DRIED
     Dosage: 325 MG, 1X/DAY, (WITH BREAKFAST BY INSTRUCTION)
  13. PROCHLORPERAZINE. [Concomitant]
     Active Substance: PROCHLORPERAZINE
     Indication: NAUSEA
     Dosage: UNK, AS NEEDED (10 MG TABLETS, TAKE ONE HALF TO ONE TABLET EVERY 6 HOURS AS NEEDED)

REACTIONS (4)
  - Renal cell carcinoma [Fatal]
  - Malaise [Unknown]
  - Blood sodium decreased [Unknown]
  - Disease progression [Fatal]
